FAERS Safety Report 7477811-1 (Version None)
Quarter: 2011Q2

REPORT INFORMATION
  Report Type: 
  Country: None (occurrence: None)
  Receive Date: 20110511
  Receipt Date: 20110511
  Transmission Date: 20111010
  Serious: Yes (Death)
  Sender: FDA-Public Use
  Company Number: None

PATIENT
  Age: 68 Year
  Sex: Female

DRUGS (11)
  1. LORAZEPAM [Concomitant]
  2. MORPHINE [Concomitant]
  3. ACYCLOVIR [Concomitant]
  4. ZOLPIDEM [Concomitant]
  5. MELPHALAN HYDROCHLORIDE [Concomitant]
  6. METHADONE HCL [Concomitant]
  7. HYDROCODONE BITARTRATE AND ACETAMINOPHEN [Concomitant]
  8. REVLIMID [Suspect]
     Indication: MYELODYSPLASTIC SYNDROME
     Dosage: REVLIMID 5 MG DAILY ORALLY
     Route: 048
     Dates: start: 20091201, end: 20101101
  9. OMEPRAZOLE [Concomitant]
  10. SENNA-MINT WAF [Concomitant]
  11. DOCUSATE [Concomitant]

REACTIONS (6)
  - PYREXIA [None]
  - UPPER-AIRWAY COUGH SYNDROME [None]
  - COUGH [None]
  - SUPRAVENTRICULAR TACHYCARDIA [None]
  - ACUTE MYELOID LEUKAEMIA [None]
  - ATRIAL FIBRILLATION [None]
